FAERS Safety Report 5779070-4 (Version None)
Quarter: 2008Q2

REPORT INFORMATION
  Report Type: 
  Country: None (occurrence: None)
  Receive Date: 20080619
  Receipt Date: 20080125
  Transmission Date: 20081010
  Serious: Yes (Death)
  Sender: FDA-Public Use
  Company Number: US-ROCHE-544190

PATIENT
  Age: 65 Year
  Sex: Female

DRUGS (10)
  1. CLONAZEPAM [Suspect]
     Indication: DRUG USE FOR UNKNOWN INDICATION
     Dosage: ROUTE: INGESTION (ING).
     Route: 048
  2. AMITRIPTYLINE HCL [Suspect]
     Indication: DRUG USE FOR UNKNOWN INDICATION
     Dosage: ROUTE: INGESTION (ING).
     Route: 048
  3. CALCIUM ANTAGONIST [Suspect]
     Indication: DRUG USE FOR UNKNOWN INDICATION
     Dosage: ROUTE: INGESTION (ING).
     Route: 048
  4. BUSPIRONE HCL [Suspect]
     Indication: DRUG USE FOR UNKNOWN INDICATION
     Dosage: ROUTE: INGESTION (ING).
     Route: 048
  5. OXYCODONE HCL [Suspect]
     Indication: DRUG USE FOR UNKNOWN INDICATION
     Dosage: ROUTE: INGESTION (ING).
     Route: 048
  6. COX-2 INHIBITOR NOS [Suspect]
     Indication: DRUG USE FOR UNKNOWN INDICATION
     Dosage: ROUTE: INGESTION (ING).
     Route: 048
  7. HYDROCHLOROTHIAZIDE [Suspect]
     Indication: DRUG USE FOR UNKNOWN INDICATION
     Dosage: ROUTE: INGESTION (ING).
     Route: 048
  8. ANTIHISTAMINE [Suspect]
     Indication: DRUG USE FOR UNKNOWN INDICATION
     Dosage: ROUTE: INGESTION (ING).
     Route: 048
  9. ANTIPSYCHOTIC NOS [Suspect]
     Dosage: REPORTED AS ANTIPSYCHOTIC ATYPICAL.
     Route: 065
  10. UNSPECIFIED DRUG [Suspect]
     Dosage: REPORTED AS ANTIHYPERLIPIDAEMIC.
     Route: 065

REACTIONS (1)
  - OVERDOSE [None]
